FAERS Safety Report 8123519-9 (Version None)
Quarter: 2012Q1

REPORT INFORMATION
  Report Type: 
  Country: None (occurrence: None)
  Receive Date: 20120208
  Receipt Date: 20120131
  Transmission Date: 20120608
  Serious: Yes (Other)
  Sender: FDA-Public Use
  Company Number: PHHY2012BR000702

PATIENT
  Sex: Female

DRUGS (4)
  1. FORMOTEROL FUMARATE [Concomitant]
     Indication: DYSPNOEA
     Dosage: 2 DF, QD
  2. FORMOTEROL FUMARATE [Suspect]
     Indication: DYSPNOEA
     Dosage: 2 DF, QD
  3. AMIODARONE HYDROCHLORIDE [Concomitant]
     Indication: ARRHYTHMIA
     Dosage: 1 DF, QD
     Route: 048
  4. DIOVAN [Concomitant]
     Indication: HYPERTENSION
     Dosage: 1 DF, QD
     Route: 048

REACTIONS (5)
  - SWELLING FACE [None]
  - OEDEMA PERIPHERAL [None]
  - ERYTHEMA [None]
  - RASH [None]
  - SWELLING [None]
